FAERS Safety Report 6500277-2 (Version None)
Quarter: 2009Q4

REPORT INFORMATION
  Report Type: 
  Country: None (occurrence: None)
  Receive Date: 20091216
  Receipt Date: 20091210
  Transmission Date: 20100525
  Serious: Yes (Death)
  Sender: FDA-Public Use
  Company Number: JP-ROCHE-660611

PATIENT
  Sex: Male
  Weight: 75 kg

DRUGS (10)
  1. PEGASYS [Suspect]
     Indication: HEPATITIS C
     Route: 058
     Dates: start: 20090612, end: 20090709
  2. PEGASYS [Suspect]
     Route: 058
     Dates: start: 20090730, end: 20090813
  3. PEGASYS [Suspect]
     Route: 058
     Dates: start: 20090827, end: 20090910
  4. COPEGUS [Suspect]
     Indication: HEPATITIS C
     Route: 048
     Dates: start: 20090612, end: 20090709
  5. COPEGUS [Suspect]
     Route: 048
     Dates: start: 20090730, end: 20090813
  6. COPEGUS [Suspect]
     Route: 048
     Dates: start: 20090827, end: 20090910
  7. BASEN [Concomitant]
     Route: 048
     Dates: end: 20090921
  8. DAONIL [Concomitant]
     Route: 048
     Dates: end: 20090921
  9. METFORMIN HCL [Concomitant]
     Dosage: DRUG NAME: NELBIS.
     Route: 048
     Dates: end: 20090921
  10. LOCHOL [Concomitant]
     Route: 048
     Dates: start: 20090612, end: 20090921

REACTIONS (2)
  - ACUTE PULMONARY OEDEMA [None]
  - PLATELET COUNT DECREASED [None]
